FAERS Safety Report 10062508 (Version 2)
Quarter: 2014Q2

REPORT INFORMATION
  Report Type: Report from Study
  Country: DE (occurrence: DE)
  Receive Date: 20140407
  Receipt Date: 20140407
  Transmission Date: 20141212
  Serious: Yes (Hospitalization, Other)
  Sender: FDA-Public Use
  Company Number: DE-ABBVIE-13P-062-1170930-00

PATIENT
  Age: 59 Year
  Sex: Female

DRUGS (4)
  1. HUMIRA [Suspect]
     Indication: RHEUMATOID ARTHRITIS
     Route: 058
     Dates: start: 20121101, end: 20131010
  2. HUMIRA [Suspect]
     Route: 058
     Dates: start: 20140325
  3. METHOTREXATE [Concomitant]
     Indication: RHEUMATOID ARTHRITIS
  4. ANALGETIC DRUG [Concomitant]
     Indication: RHEUMATOID ARTHRITIS

REACTIONS (2)
  - Rotator cuff syndrome [Not Recovered/Not Resolved]
  - Purulence [Recovering/Resolving]
